FAERS Safety Report 17562490 (Version 2)
Quarter: 2020Q1

REPORT INFORMATION
  Report Type: Report from Study
  Country: IT (occurrence: IT)
  Receive Date: 20200319
  Receipt Date: 20200324
  Transmission Date: 20200409
  Serious: Yes (Hospitalization)
  Sender: FDA-Public Use
  Company Number: IT-MYLANLABS-2020M1029879

PATIENT
  Age: 87 Year
  Sex: Female

DRUGS (8)
  1. BRUFEN [Suspect]
     Active Substance: IBUPROFEN
     Indication: OSTEOARTHRITIS
     Dosage: 600 MILLIGRAM, PRN
     Route: 048
     Dates: start: 20150210, end: 20191208
  2. METFORMIN [Concomitant]
     Active Substance: METFORMIN HYDROCHLORIDE
     Dosage: 1000 MILLIGRAM
     Route: 048
  3. CARDIOASPIRIN [Interacting]
     Active Substance: ASPIRIN
     Indication: THROMBOSIS PROPHYLAXIS
     Dosage: 100 MILLIGRAM, QD
     Route: 048
     Dates: start: 20111025, end: 20191208
  4. DELTACORTENE [Concomitant]
     Active Substance: PREDNISONE
     Dosage: UNK
  5. PALEXIA [Concomitant]
     Active Substance: TAPENTADOL HYDROCHLORIDE
     Dosage: UNK
  6. LACIREX [Concomitant]
     Active Substance: LACIDIPINE
     Dosage: UNK
  7. CAPTOPRIL HYDROCHLOROTHIAZIDE [Concomitant]
     Active Substance: CAPTOPRIL\HYDROCHLOROTHIAZIDE
     Dosage: UNK
     Route: 048
  8. LANSOPRAZOLE. [Concomitant]
     Active Substance: LANSOPRAZOLE
     Dosage: 30 MILLIGRAM
     Route: 048

REACTIONS (2)
  - Drug interaction [Unknown]
  - Anaemia macrocytic [Recovering/Resolving]

NARRATIVE: CASE EVENT DATE: 20191208
